FAERS Safety Report 4498382-8 (Version None)
Quarter: 2004Q4

REPORT INFORMATION
  Report Type: 
  Country: None (occurrence: None)
  Receive Date: 20041105
  Receipt Date: 20041025
  Transmission Date: 20050328
  Serious: Yes (Hospitalization)
  Sender: FDA-Public Use
  Company Number: 2004AC00679

PATIENT
  Age: 43 Year
  Sex: Female

DRUGS (1)
  1. ZOLMITRIPTAN [Suspect]
     Indication: MIGRAINE

REACTIONS (10)
  - CAROTID ARTERY DISSECTION [None]
  - CAROTID ARTERY OCCLUSION [None]
  - CEREBRAL ARTERY OCCLUSION [None]
  - CEREBROVASCULAR ACCIDENT [None]
  - HAEMORRHAGIC CEREBRAL INFARCTION [None]
  - HEMIANOPIA [None]
  - HEMIPLEGIA [None]
  - THROMBOSIS [None]
  - TRANSIENT ISCHAEMIC ATTACK [None]
  - VASOSPASM [None]
